FAERS Safety Report 10507008 (Version 1)
Quarter: 2014Q4

REPORT INFORMATION
  Report Type: Spontaneous
  Country: GR (occurrence: GR)
  Receive Date: 20141009
  Receipt Date: 20141009
  Transmission Date: 20150528
  Serious: Yes (Hospitalization)
  Sender: FDA-Public Use
  Company Number: GR-JNJFOC-20141000740

PATIENT
  Sex: Female

DRUGS (1)
  1. XEPLION [Suspect]
     Active Substance: PALIPERIDONE PALMITATE
     Indication: SCHIZOPHRENIA
     Route: 030

REACTIONS (3)
  - Decreased appetite [Unknown]
  - Pain in extremity [Unknown]
  - Swelling [Unknown]

NARRATIVE: CASE EVENT DATE: 201409
